FAERS Safety Report 13500657 (Version 1)
Quarter: 2017Q2

REPORT INFORMATION
  Report Type: Spontaneous
  Country: US (occurrence: US)
  Receive Date: 20170501
  Receipt Date: 20170501
  Transmission Date: 20170830
  Serious: Yes (Hospitalization)
  Sender: FDA-Public Use
  Company Number: US-BAUSCH-BL-2017-010411

PATIENT
  Age: 80 Year
  Sex: Male

DRUGS (2)
  1. PROVENGE [Suspect]
     Active Substance: SIPULEUCEL-T
     Route: 042
     Dates: start: 20170410, end: 20170410
  2. PROVENGE [Suspect]
     Active Substance: SIPULEUCEL-T
     Indication: PROSTATE CANCER
     Route: 042
     Dates: start: 20170331, end: 20170331

REACTIONS (9)
  - Malaise [Unknown]
  - Pyrexia [Unknown]
  - Nausea [Unknown]
  - Chills [Unknown]
  - Decreased appetite [Unknown]
  - Vomiting [Unknown]
  - Muscle spasms [Unknown]
  - Hospitalisation [Unknown]
  - Diarrhoea [Unknown]

NARRATIVE: CASE EVENT DATE: 201704
